FAERS Safety Report 17041994 (Version 1)
Quarter: 2019Q4

REPORT INFORMATION
  Report Type: Spontaneous
  Country: GB (occurrence: GB)
  Receive Date: 20191118
  Receipt Date: 20191118
  Transmission Date: 20200122
  Serious: Yes (Other)
  Sender: FDA-Public Use
  Company Number: GB-SUN PHARMACEUTICAL INDUSTRIES LTD-2019RR-227790

PATIENT
  Age: 25 Year
  Sex: Female

DRUGS (1)
  1. FLUOXETINE [Suspect]
     Active Substance: FLUOXETINE HYDROCHLORIDE
     Indication: ANXIETY
     Dosage: 40 MILLIGRAM, UNK
     Route: 048

REACTIONS (3)
  - Galactorrhoea [Not Recovered/Not Resolved]
  - Anorgasmia [Not Recovered/Not Resolved]
  - Bruxism [Not Recovered/Not Resolved]
